FAERS Safety Report 7793536-7 (Version None)
Quarter: 2011Q4

REPORT INFORMATION
  Report Type: 
  Country: None (occurrence: None)
  Receive Date: 20111003
  Receipt Date: 20110922
  Transmission Date: 20120403
  Serious: Yes (Hospitalization, Other)
  Sender: FDA-Public Use
  Company Number: CH-NOVOPROD-333389

PATIENT

DRUGS (4)
  1. LIRAGLUTIDE FLEXPEN [Suspect]
     Indication: OBESITY
     Dosage: 3.0 MG, QD
     Route: 058
     Dates: start: 20110629
  2. ACETAMINOPHEN [Concomitant]
     Dosage: 4 G, QD
  3. IBUPROFEN [Concomitant]
     Dosage: 400 MG, UNK
  4. AUGMENTIN '125' [Concomitant]
     Dosage: 1 G, UNK

REACTIONS (3)
  - ABDOMINAL WALL INFECTION [None]
  - TREATMENT FAILURE [None]
  - ABDOMINAL PAIN [None]
